FAERS Safety Report 4381342-5 (Version None)
Quarter: 2004Q2

REPORT INFORMATION
  Report Type: 
  Country: None (occurrence: None)
  Receive Date: 20040617
  Receipt Date: 20040617
  Transmission Date: 20050107
  Serious: Yes (Hospitalization, Disabling, Other)
  Sender: FDA-Public Use
  Company Number: None

PATIENT
  Age: 18 Year
  Sex: Male
  Weight: 65.7716 kg

DRUGS (2)
  1. ACCUTANE [Suspect]
     Indication: ACNE CYSTIC
     Dosage: 40 MG 1X DAY ORAL
     Route: 048
     Dates: start: 20020101
  2. ACCUTANE [Suspect]
     Indication: ACNE CYSTIC
     Dosage: 40 MG 1X DAY ORAL
     Route: 048
     Dates: start: 20020601

REACTIONS (6)
  - DELUSION [None]
  - EDUCATIONAL PROBLEM [None]
  - IMPULSIVE BEHAVIOUR [None]
  - MENTAL IMPAIRMENT [None]
  - PARANOIA [None]
  - SOCIAL AVOIDANT BEHAVIOUR [None]
